FAERS Safety Report 6852401-X (Version None)
Quarter: 2010Q3

REPORT INFORMATION
  Report Type: 
  Country: None (occurrence: None)
  Receive Date: 20100717
  Receipt Date: 20071114
  Transmission Date: 20110219
  Serious: No
  Sender: FDA-Public Use
  Company Number: US-PFIZER INC-2007097114

PATIENT
  Sex: Female
  Weight: 52.3 kg

DRUGS (37)
  1. CHANTIX [Suspect]
     Indication: SMOKING CESSATION THERAPY
     Route: 048
     Dates: start: 20071105
  2. ACCOLATE [Concomitant]
     Indication: CHRONIC OBSTRUCTIVE PULMONARY DISEASE
  3. ALBUTEROL [Concomitant]
     Indication: CHRONIC OBSTRUCTIVE PULMONARY DISEASE
  4. ALBUTEROL [Concomitant]
  5. TIOTROPIUM BROMIDE [Concomitant]
     Indication: CHRONIC OBSTRUCTIVE PULMONARY DISEASE
  6. TIOTROPIUM BROMIDE [Concomitant]
  7. ADVAIR DISKUS 100/50 [Concomitant]
     Indication: CHRONIC OBSTRUCTIVE PULMONARY DISEASE
  8. ADVAIR DISKUS 100/50 [Concomitant]
  9. HYDROCODONE [Concomitant]
     Indication: CHRONIC OBSTRUCTIVE PULMONARY DISEASE
  10. HYDROCODONE [Concomitant]
     Indication: RHEUMATOID ARTHRITIS
  11. FLONASE [Concomitant]
     Indication: RHEUMATOID ARTHRITIS
  12. FLONASE [Concomitant]
  13. ASTELIN [Concomitant]
     Indication: RHEUMATOID ARTHRITIS
  14. ASTELIN [Concomitant]
  15. HYDROCORTISONE [Concomitant]
     Indication: RHEUMATOID ARTHRITIS
  16. HYDROCORTISONE [Concomitant]
  17. FOLIC ACID [Concomitant]
     Indication: RHEUMATOID ARTHRITIS
  18. FOLIC ACID [Concomitant]
  19. METHOTREXATE [Concomitant]
     Indication: RHEUMATOID ARTHRITIS
  20. METHOTREXATE [Concomitant]
  21. HUMIRA [Concomitant]
     Indication: RHEUMATOID ARTHRITIS
  22. HUMIRA [Concomitant]
  23. VITAMIN D [Concomitant]
     Indication: OSTEOPOROSIS
  24. VITAMIN D [Concomitant]
  25. ELENOL [Concomitant]
  26. ELENOL [Concomitant]
  27. METOCLOPRAMIDE [Concomitant]
  28. METOCLOPRAMIDE [Concomitant]
  29. CYMBALTA [Concomitant]
  30. CYMBALTA [Concomitant]
  31. LYRICA [Concomitant]
  32. LYRICA [Concomitant]
  33. ENALAPRIL MALEATE [Concomitant]
     Indication: HYPERTENSION
  34. ENALAPRIL MALEATE [Concomitant]
  35. FOSAMAX [Concomitant]
     Indication: OSTEOPOROSIS
  36. FOSAMAX [Concomitant]
  37. PRAVASTATIN [Concomitant]
     Indication: BLOOD CHOLESTEROL INCREASED

REACTIONS (5)
  - ABNORMAL DREAMS [None]
  - MIDDLE INSOMNIA [None]
  - NAUSEA [None]
  - TREMOR [None]
  - VOMITING [None]
